FAERS Safety Report 9295535 (Version 1)
Quarter: 2013Q2

REPORT INFORMATION
  Report Type: Spontaneous
  Country: US (occurrence: US)
  Receive Date: 20130517
  Receipt Date: 20130517
  Transmission Date: 20140414
  Serious: Yes (Hospitalization)
  Sender: FDA-Public Use
  Company Number: US-BAYER-2013-061610

PATIENT
  Age: 46 Year
  Sex: Female
  Weight: 67 kg

DRUGS (3)
  1. YASMIN [Suspect]
  2. HYDROCODONE W/APAP [Concomitant]
     Dosage: 7.5 /500 MG
     Route: 048
     Dates: start: 20060503
  3. HYDROCODONE W/APAP [Concomitant]
     Dosage: 7.5 /500 MG
     Route: 048
     Dates: start: 20060711

REACTIONS (1)
  - Pulmonary embolism [None]
